FAERS Safety Report 9547204 (Version 1)
Quarter: 2013Q2

REPORT INFORMATION
  Report Type: Spontaneous
  Country: US (occurrence: None)
  Receive Date: 20130606
  Receipt Date: 20130606
  Transmission Date: 20140414
  Serious: No
  Sender: FDA-Public Use
  Company Number: 2012PROUSA02305

PATIENT
  Age: 84 Year
  Sex: Male
  Weight: 97.2 kg

DRUGS (13)
  1. PROVENGE (SIPULEUCEL-T) SUSPENSION, 250ML [Suspect]
     Indication: PROSTATE CANCER METASTATIC
     Dosage: 250 ML, SINGLE, INTRAVENOUS
     Route: 042
     Dates: start: 20120914, end: 20120914
  2. TOPROL (METOPROLOL SUCCINATE) [Concomitant]
  3. PREVACID (LANSOPRAZOLE) [Concomitant]
  4. FLUTICASONE PROPIONATE (FLUTICASONE PROPIONATE) [Concomitant]
  5. SELENIUM (SELENIUM SULFIDE) [Concomitant]
  6. WARFARIN SODIUM (WARFARIN SODIUM) [Concomitant]
  7. POTASSIUM CHLORIDE (POTASSIUM CHLORIDE) [Concomitant]
  8. MAXZIDE (HYDROCHLOROTHIAZIDE, TRIAMTERENE) [Concomitant]
  9. CASODEX (BICALUTAMIDE) [Concomitant]
  10. LIPITOR (ATORVASTATIN CALCIUM) [Concomitant]
  11. VITAMIN D3 (COLECALCIFEROL) [Concomitant]
  12. SYMBICORT [Concomitant]
  13. ZOMETA (ZOLECRONIC ACID) [Concomitant]

REACTIONS (4)
  - Tachycardia [None]
  - Hypotension [None]
  - Hypertension [None]
  - Chills [None]
